FAERS Safety Report 7272823-5 (Version None)
Quarter: 2011Q1

REPORT INFORMATION
  Report Type: 
  Country: None (occurrence: None)
  Receive Date: 20110203
  Receipt Date: 20110124
  Transmission Date: 20110831
  Serious: Yes (Other)
  Sender: FDA-Public Use
  Company Number: US-MERCK-1010USA01911

PATIENT
  Age: 62 Year
  Sex: Female
  Weight: 66 kg

DRUGS (14)
  1. FOSAMAX [Suspect]
     Indication: OSTEOPENIA
     Route: 048
     Dates: start: 20030401, end: 20080101
  2. PROAIR (ALBUTEROL SULFATE) [Concomitant]
     Indication: ASTHMA
     Route: 065
     Dates: start: 20030113, end: 20090923
  3. FOSAMAX [Suspect]
     Route: 048
     Dates: start: 20080201, end: 20090101
  4. AMBIEN [Concomitant]
     Indication: SLEEP DISORDER
     Route: 065
     Dates: start: 20030327, end: 20030427
  5. FOSAMAX [Suspect]
     Route: 048
     Dates: start: 20080201, end: 20090101
  6. ACETAMINOPHEN AND CODEINE [Concomitant]
     Indication: PAIN
     Route: 065
     Dates: start: 20030124, end: 20061110
  7. ADVAIR [Concomitant]
     Indication: ASTHMA
     Route: 065
     Dates: start: 20030409, end: 20091022
  8. ACTONEL [Suspect]
     Indication: OSTEOPOROSIS PROPHYLAXIS
     Route: 065
     Dates: start: 20090701, end: 20090923
  9. NORVASC [Concomitant]
     Indication: HYPERTENSION
     Route: 065
     Dates: start: 20030221, end: 20070427
  10. ACTONEL [Suspect]
     Indication: OSTEOPENIA
     Route: 065
     Dates: start: 20090701, end: 20090923
  11. GUAIFENESIN [Concomitant]
     Indication: RESPIRATORY TRACT CONGESTION
     Route: 065
     Dates: start: 20030310, end: 20070803
  12. DIPHENOXYLATE [Concomitant]
     Indication: DIARRHOEA
     Route: 065
     Dates: start: 20030322, end: 20030324
  13. FOSAMAX [Suspect]
     Indication: OSTEOPOROSIS PROPHYLAXIS
     Route: 048
     Dates: start: 20030401, end: 20080101
  14. WELLBUTRIN [Concomitant]
     Indication: DEPRESSION
     Route: 065
     Dates: start: 20030409, end: 20030609

REACTIONS (16)
  - PNEUMONIA [None]
  - COUGH [None]
  - SQUAMOUS CELL CARCINOMA OF SKIN [None]
  - OSTEOMYELITIS [None]
  - SPINAL COLUMN STENOSIS [None]
  - MASS [None]
  - DIVERTICULUM [None]
  - OSTEONECROSIS OF JAW [None]
  - DENTAL CARIES [None]
  - SEASONAL ALLERGY [None]
  - HAEMATOMA [None]
  - EXOSTOSIS [None]
  - HYPERTHYROIDISM [None]
  - BONE DENSITY DECREASED [None]
  - BLOOD CHOLESTEROL INCREASED [None]
  - INFLAMMATION [None]
